FAERS Safety Report 8042895-9 (Version None)
Quarter: 2012Q1

REPORT INFORMATION
  Report Type: 
  Country: None (occurrence: None)
  Receive Date: 20120112
  Receipt Date: 20120110
  Transmission Date: 20120608
  Serious: Yes (Death)
  Sender: FDA-Public Use
  Company Number: US-CELGENEUS-163-21880-12011020

PATIENT
  Sex: Female
  Weight: 59.928 kg

DRUGS (16)
  1. OS-CAL 500 + D [Concomitant]
     Dosage: 500 MILLIGRAM
     Route: 065
  2. LASIX [Concomitant]
     Dosage: 40 MILLIGRAM
     Route: 065
  3. DURAGESIC-100 [Concomitant]
     Dosage: 25 MCG/HR
     Route: 065
  4. REVLIMID [Suspect]
     Dosage: 15 MILLIGRAM
     Route: 048
     Dates: start: 20100501
  5. COREG CR [Concomitant]
     Dosage: 40MG/24HR
     Route: 065
  6. CYCLOPHOSPHAMIDE [Concomitant]
     Dosage: 50 MILLIGRAM
     Route: 065
  7. DEXAMETHASONE TAB [Concomitant]
     Dosage: .5 MILLIGRAM
     Route: 065
  8. REVLIMID [Suspect]
     Dosage: 10 MILLIGRAM
     Route: 048
     Dates: start: 20110401, end: 20110914
  9. LYRICA [Concomitant]
     Dosage: 150 MILLIGRAM
     Route: 065
  10. REMERON [Concomitant]
     Dosage: 30 MILLIGRAM
     Route: 065
  11. REVLIMID [Suspect]
     Indication: MULTIPLE MYELOMA
     Dosage: 25 MILLIGRAM
     Route: 048
     Dates: start: 20100430
  12. NEXIUM [Concomitant]
     Dosage: 20 MILLIGRAM
     Route: 065
  13. VICODIN [Concomitant]
     Dosage: 5/500 MG
     Route: 065
  14. ZOCOR [Concomitant]
     Dosage: 10 MILLIGRAM
     Route: 065
  15. ISOSORBIDE DINITRATE [Concomitant]
     Dosage: 5 MILLIGRAM
     Route: 065
  16. FOLIC ACID [Concomitant]
     Dosage: 1 MILLIGRAM
     Route: 065

REACTIONS (1)
  - DEATH [None]
